FAERS Safety Report 6357828-0 (Version None)
Quarter: 2009Q3

REPORT INFORMATION
  Report Type: 
  Country: None (occurrence: None)
  Receive Date: 20090916
  Receipt Date: 20081105
  Transmission Date: 20100115
  Serious: Yes (Other)
  Sender: FDA-Public Use
  Company Number: PHEH2008US11632

PATIENT
  Sex: Female

DRUGS (2)
  1. DIOVAN HCT [Suspect]
     Indication: HYPERTENSION
     Dosage: 320/25 MG
  2. LOTREL [Suspect]
     Indication: HYPERTENSION
     Dosage: 10/40 MG

REACTIONS (2)
  - LOSS OF EMPLOYMENT [None]
  - RENAL DISORDER [None]
